FAERS Safety Report 14221824 (Version 4)
Quarter: 2018Q1

REPORT INFORMATION
  Report Type: Report from Study
  Country: US (occurrence: US)
  Receive Date: 20171124
  Receipt Date: 20180315
  Transmission Date: 20180508
  Serious: No
  Sender: FDA-Public Use
  Company Number: PHEH2017US037782

PATIENT
  Sex: Female

DRUGS (3)
  1. VOLTAREN [Suspect]
     Active Substance: DICLOFENAC SODIUM
     Indication: PRODUCT USED FOR UNKNOWN INDICATION
     Route: 065
  2. COSENTYX [Suspect]
     Active Substance: SECUKINUMAB
     Dosage: 300 MG, QMO
     Route: 058
  3. COSENTYX [Suspect]
     Active Substance: SECUKINUMAB
     Indication: PRODUCT USED FOR UNKNOWN INDICATION
     Dosage: 360 MG, BID
     Route: 048

REACTIONS (11)
  - Skin exfoliation [Unknown]
  - Otorrhoea [Recovered/Resolved]
  - Psoriasis [Unknown]
  - Pruritus [Recovered/Resolved]
  - Malaise [Unknown]
  - Incorrect dose administered [Unknown]
  - Rash [Recovered/Resolved]
  - Bronchitis [Unknown]
  - Inappropriate schedule of drug administration [Unknown]
  - Pruritus [Unknown]
  - Incorrect route of drug administration [Unknown]
